FAERS Safety Report 16397038 (Version 2)
Quarter: 2019Q3

REPORT INFORMATION
  Report Type: Spontaneous
  Country: DE (occurrence: DE)
  Receive Date: 20190606
  Receipt Date: 20190926
  Transmission Date: 20191004
  Serious: Yes (Hospitalization, Other)
  Sender: FDA-Public Use
  Company Number: DE-AUROBINDO-AUR-APL-2019-031394

PATIENT
  Age: 77 Year
  Sex: Female
  Weight: 64.5 kg

DRUGS (8)
  1. OXALIPLATIN. [Suspect]
     Active Substance: OXALIPLATIN
     Dosage: 154 MILLIGRAM, CYCLICAL
     Route: 042
     Dates: start: 20190429
  2. OXALIPLATIN. [Suspect]
     Active Substance: OXALIPLATIN
     Indication: RECTAL CANCER
     Dosage: 154 MILLIGRAM, CYCLICAL
     Route: 042
     Dates: start: 20190129
  3. AFLIBERCEPT [Suspect]
     Active Substance: AFLIBERCEPT
     Indication: RECTAL CANCER
     Dosage: 280 MILLIGRAM, CYCLICAL
     Route: 042
     Dates: start: 20190129, end: 20190129
  4. FLUOROURACIL. [Suspect]
     Active Substance: FLUOROURACIL
     Dosage: 2896 MILLIGRAM, CYCLICAL
     Route: 042
     Dates: start: 20190429
  5. FOLINIC ACID SOLUTION FOR INJECTION [Suspect]
     Active Substance: LEUCOVORIN
     Indication: RECTAL CANCER
     Dosage: 557 MILLIGRAM, CYCLICAL
     Route: 042
     Dates: start: 20190129
  6. FOLINIC ACID SOLUTION FOR INJECTION [Suspect]
     Active Substance: LEUCOVORIN
     Dosage: 557 MILLIGRAM, CYCLICAL
     Route: 042
     Dates: start: 20190429
  7. AFLIBERCEPT [Suspect]
     Active Substance: AFLIBERCEPT
     Dosage: 280 MILLIGRAM, CYCLICAL
     Route: 042
     Dates: start: 20190212, end: 20190212
  8. FLUOROURACIL. [Suspect]
     Active Substance: FLUOROURACIL
     Indication: RECTAL CANCER
     Dosage: 2896 MILLIGRAM, CYCLICAL,2896 MG, QCY
     Route: 042
     Dates: start: 20190129

REACTIONS (1)
  - Acute coronary syndrome [Recovered/Resolved]

NARRATIVE: CASE EVENT DATE: 20190517
